FAERS Safety Report 5958188-7 (Version None)
Quarter: 2008Q4

REPORT INFORMATION
  Report Type: 
  Country: None (occurrence: None)
  Receive Date: 20081117
  Receipt Date: 20081117
  Transmission Date: 20090506
  Serious: Yes (Other)
  Sender: FDA-Public Use
  Company Number: None

PATIENT
  Age: 59 Year
  Sex: Female
  Weight: 78.0187 kg

DRUGS (1)
  1. CYMBALTA [Suspect]
     Indication: DEPRESSION
     Dosage: ONE TIME PER DAY
     Dates: start: 20061115, end: 20080106

REACTIONS (3)
  - BRONCHITIS [None]
  - OROPHARYNGEAL PAIN [None]
  - PAIN [None]
